FAERS Safety Report 9094639 (Version 7)
Quarter: 2013Q2

REPORT INFORMATION
  Report Type: Report from Study
  Country: FI (occurrence: FI)
  Receive Date: 20130219
  Receipt Date: 20130503
  Transmission Date: 20140414
  Serious: Yes (Hospitalization)
  Sender: FDA-Public Use
  Company Number: FI-PFIZER INC-2013052575

PATIENT
  Age: 30 Year
  Sex: Male
  Weight: 77 kg

DRUGS (4)
  1. CYTARABINE [Suspect]
     Indication: ACUTE LYMPHOCYTIC LEUKAEMIA
     Dosage: 4 G, CYCLIC, ON DAYS 1 THROUGH 6 OF A 4 WEEK CYCLE
     Route: 042
     Dates: start: 20130123, end: 20130128
  2. FLUDARABINE [Suspect]
     Indication: ACUTE LYMPHOCYTIC LEUKAEMIA
     Dosage: 60 MG, CYCLIC, ON DAYS 2 THROUGH 6 OF A 4 WEEK CYCLE
     Route: 042
     Dates: start: 20130124, end: 20130128
  3. PEGFILGRASTIM [Suspect]
     Indication: NEUTROPENIA
     Dosage: 6000 UG, 1X/DAY ON DAY 13 OF CYCLE
     Route: 058
     Dates: start: 20130204, end: 20130204
  4. FLUCONAZOLE SANDOZ [Concomitant]
     Indication: PROPHYLAXIS
     Dosage: 400 MG, 1X/DAY
     Route: 048
     Dates: start: 20130129, end: 20130213

REACTIONS (2)
  - Mucosal inflammation [Recovered/Resolved]
  - Stomatitis [Recovered/Resolved]
